FAERS Safety Report 4962427-9 (Version None)
Quarter: 2006Q1

REPORT INFORMATION
  Report Type: 
  Country: None (occurrence: None)
  Receive Date: 20060329
  Receipt Date: 20060316
  Transmission Date: 20060701
  Serious: Yes (Hospitalization, Other)
  Sender: FDA-Public Use
  Company Number: 2006AL000744

PATIENT
  Age: 48 Year
  Sex: Male

DRUGS (1)
  1. METFORMIN HYDROCHLORIDE [Suspect]
     Indication: DIABETES MELLITUS NON-INSULIN-DEPENDENT
     Dosage: 500 MG; TID; PO
     Route: 048

REACTIONS (14)
  - ABDOMINAL TENDERNESS [None]
  - BAND NEUTROPHIL PERCENTAGE INCREASED [None]
  - BLOOD ALCOHOL INCREASED [None]
  - BLOOD BICARBONATE DECREASED [None]
  - BLOOD GLUCOSE INCREASED [None]
  - DYSPNOEA [None]
  - GASTROENTERITIS [None]
  - HAEMODIALYSIS [None]
  - HYPOVOLAEMIA [None]
  - LACTIC ACIDOSIS [None]
  - LETHARGY [None]
  - NEUTROPHIL PERCENTAGE INCREASED [None]
  - RENAL FAILURE ACUTE [None]
  - WHITE BLOOD CELL COUNT INCREASED [None]
